FAERS Safety Report 9037288 (Version 2)
Quarter: 2013Q1

REPORT INFORMATION
  Report Type: Spontaneous
  Country: US (occurrence: None)
  Receive Date: 20130115
  Receipt Date: 20130118
  Transmission Date: 20140127
  Serious: Yes (Other)
  Sender: FDA-Public Use
  Company Number: CIO12026650

PATIENT
  Sex: Female

DRUGS (1)
  1. CREST CAVITY PROTECTION [Suspect]
     Dosage: INTRAORAL

REACTIONS (3)
  - Pharyngeal oedema [None]
  - Swollen tongue [None]
  - Hypersensitivity [None]
